FAERS Safety Report 9290529 (Version 2)
Quarter: 2013Q2

REPORT INFORMATION
  Report Type: Spontaneous
  Country: US (occurrence: US)
  Receive Date: 20130514
  Receipt Date: 20130612
  Transmission Date: 20140414
  Serious: Yes (Hospitalization, Other)
  Sender: FDA-Public Use
  Company Number: US-RB-053334-13

PATIENT
  Age: 57 Year
  Sex: Female

DRUGS (6)
  1. SUBOXONE FILM [Suspect]
     Indication: DRUG DEPENDENCE
     Dosage: SUBOXONE FILM
     Route: 060
     Dates: start: 201208, end: 201208
  2. SUBOXONE TABLET [Suspect]
     Indication: DRUG DEPENDENCE
     Route: 060
     Dates: start: 201208, end: 201209
  3. PROZAC [Concomitant]
     Indication: DEPRESSION
     Dosage: 2 IN AM 1 IN PM
     Route: 048
  4. LAMOTRIGINE [Concomitant]
     Indication: ANXIETY
     Route: 048
  5. MYRBETRIQ [Concomitant]
     Indication: URINARY INCONTINENCE
     Dosage: DOSAGE DETAILS UNKNOWN
     Route: 048
  6. AMITIZA [Concomitant]
     Indication: CONSTIPATION
     Dosage: UNKNOWN DOSAGE DETAILS
     Route: 048

REACTIONS (3)
  - Anxiety [Recovered/Resolved]
  - Mental disorder [Recovered/Resolved]
  - Convulsion [Recovered/Resolved]
